FAERS Safety Report 5610419-9 (Version None)
Quarter: 2008Q1

REPORT INFORMATION
  Report Type: 
  Country: None (occurrence: None)
  Receive Date: 20080128
  Receipt Date: 20080114
  Transmission Date: 20080703
  Serious: Yes (Hospitalization)
  Sender: FDA-Public Use
  Company Number: 8020028

PATIENT
  Age: 75 Year
  Sex: Male

DRUGS (3)
  1. KEPPRA [Suspect]
     Indication: GRAND MAL CONVULSION
     Dosage: 500 MG 2/D PO
     Route: 048
     Dates: start: 20030101, end: 20060924
  2. KEPPRA [Suspect]
     Indication: GRAND MAL CONVULSION
     Dosage: 750 MG 2/D PO
     Route: 048
     Dates: start: 20060925
  3. PREDNISONE TAB [Concomitant]

REACTIONS (10)
  - ANXIETY [None]
  - DIARRHOEA [None]
  - DRUG RASH WITH EOSINOPHILIA AND SYSTEMIC SYMPTOMS [None]
  - GRAND MAL CONVULSION [None]
  - IMPAIRED HEALING [None]
  - INCONTINENCE [None]
  - PEMPHIGOID [None]
  - SECRETION DISCHARGE [None]
  - SKIN EROSION [None]
  - SKIN EXFOLIATION [None]
